FAERS Safety Report 9075364 (Version 1)
Quarter: 2013Q1

REPORT INFORMATION
  Report Type: Report from Study
  Country: US (occurrence: US)
  Receive Date: 20130129
  Receipt Date: 20130129
  Transmission Date: 20140127
  Serious: No
  Sender: FDA-Public Use
  Company Number: US-ABBOTT-12P-163-0941346-00

PATIENT
  Sex: Female
  Weight: 63.56 kg

DRUGS (5)
  1. HUMIRA 40 MG/ 0.8 ML PRE-FILLED SYRINGE [Suspect]
     Indication: RHEUMATOID ARTHRITIS
     Dates: start: 200909, end: 201106
  2. METHOTREXATE [Concomitant]
     Indication: RHEUMATOID ARTHRITIS
  3. PLAQUENIL [Concomitant]
     Indication: RHEUMATOID ARTHRITIS
  4. THYROXIN [Concomitant]
     Indication: HYPOTHYROIDISM
  5. ACTONEL [Concomitant]
     Indication: OSTEOPOROSIS PROPHYLAXIS

REACTIONS (2)
  - Musculoskeletal stiffness [Not Recovered/Not Resolved]
  - Arthralgia [Not Recovered/Not Resolved]
